FAERS Safety Report 8586479-2 (Version None)
Quarter: 2012Q3

REPORT INFORMATION
  Report Type: 
  Country: None (occurrence: None)
  Receive Date: 20120810
  Receipt Date: 20120807
  Transmission Date: 20120928
  Serious: Yes (Death, Hospitalization)
  Sender: FDA-Public Use
  Company Number: US-BRISTOL-MYERS SQUIBB COMPANY-16554636

PATIENT
  Age: 54 Year
  Sex: Female

DRUGS (1)
  1. YERVOY [Suspect]
     Dosage: TOTAL CYCLES 2
     Dates: start: 20111201

REACTIONS (4)
  - DEPRESSION [None]
  - DIARRHOEA [None]
  - CONFUSIONAL STATE [None]
  - DEATH [None]
